FAERS Safety Report 12561112 (Version 3)
Quarter: 2016Q3

REPORT INFORMATION
  Report Type: Report from Study
  Country: CA (occurrence: CA)
  Receive Date: 20160715
  Receipt Date: 20160829
  Transmission Date: 20161109
  Serious: Yes (Other)
  Sender: FDA-Public Use
  Company Number: CA-009507513-1607CAN005051

PATIENT
  Age: 62 Year
  Sex: Male
  Weight: 78.6 kg

DRUGS (1)
  1. PEMBROLIZUMAB. [Suspect]
     Active Substance: PEMBROLIZUMAB
     Indication: NON-SMALL CELL LUNG CANCER
     Dosage: 157MG, THEN WAS ADJUSTED TO 146 MG, Q3W (STRENGTH REPORTED AS 2MG/KG)
     Route: 042
     Dates: start: 20160621

REACTIONS (7)
  - Cough [Unknown]
  - Weight decreased [Unknown]
  - Decreased appetite [Unknown]
  - Dyspnoea [Unknown]
  - Musculoskeletal discomfort [Unknown]
  - Flushing [Unknown]
  - Malignant pleural effusion [Unknown]

NARRATIVE: CASE EVENT DATE: 2016
